FAERS Safety Report 7795941-1 (Version None)
Quarter: 2011Q4

REPORT INFORMATION
  Report Type: 
  Country: None (occurrence: None)
  Receive Date: 20111004
  Receipt Date: 20110926
  Transmission Date: 20120403
  Serious: Yes (Hospitalization)
  Sender: FDA-Public Use
  Company Number: JP-BAXTER-2011BH030204

PATIENT
  Age: 61 Year
  Sex: Female

DRUGS (6)
  1. RISEDRONATE SODIUM [Concomitant]
     Indication: OSTEOPOROSIS PROPHYLAXIS
     Route: 048
     Dates: start: 20110806, end: 20110910
  2. CYCLOPHOSPHAMIDE [Suspect]
     Indication: INTERSTITIAL LUNG DISEASE
     Route: 041
     Dates: start: 20110907, end: 20110907
  3. GASMOTIN [Concomitant]
     Indication: ILEUS PARALYTIC
     Route: 048
     Dates: start: 20110906, end: 20110920
  4. CYCLOPHOSPHAMIDE [Suspect]
     Indication: SCLERODERMA
     Route: 041
     Dates: start: 20110907, end: 20110907
  5. FAMOTIDINE [Concomitant]
     Indication: GASTROOESOPHAGEAL REFLUX DISEASE
     Route: 048
     Dates: start: 20110803, end: 20110915
  6. PROCYLIN [Concomitant]
     Indication: PERIPHERAL VASCULAR DISORDER
     Route: 048
     Dates: start: 20110805, end: 20110915

REACTIONS (2)
  - THROMBOCYTOPENIA [None]
  - HEPATIC FUNCTION ABNORMAL [None]
